FAERS Safety Report 9676043 (Version 1)
Quarter: 2013Q4

REPORT INFORMATION
  Report Type: Report from Study
  Country: BR (occurrence: BR)
  Receive Date: 20131107
  Receipt Date: 20131107
  Transmission Date: 20140711
  Serious: Yes (Other)
  Sender: FDA-Public Use
  Company Number: PHHY2013BR126599

PATIENT
  Sex: Female
  Weight: 59 kg

DRUGS (6)
  1. ACLASTA [Suspect]
     Indication: OSTEOPOROSIS
     Dosage: 5 MG, UNK
     Route: 042
     Dates: start: 2012
  2. ARADOIS [Concomitant]
     Dosage: UNK UKN, UNK
     Dates: start: 2005
  3. LOSARTAN [Concomitant]
     Dosage: UNK UKN, UNK
     Dates: start: 2005
  4. CARVEDILOL [Concomitant]
     Dosage: UNK UKN, UNK
     Dates: start: 2005
  5. SPIRONOLACTONE [Concomitant]
     Dosage: UNK UKN, UNK
     Dates: start: 2005
  6. FUROSEMIDE [Concomitant]
     Dosage: UNK UKN, UNK
     Dates: start: 2005

REACTIONS (3)
  - Fall [Recovered/Resolved]
  - Laceration [Recovered/Resolved]
  - Arthropathy [Unknown]
